FAERS Safety Report 4636718-5 (Version None)
Quarter: 2005Q2

REPORT INFORMATION
  Report Type: 
  Country: None (occurrence: None)
  Receive Date: 20050414
  Receipt Date: 20050331
  Transmission Date: 20051028
  Serious: Yes (Hospitalization)
  Sender: FDA-Public Use
  Company Number: ABILZ-05-0205

PATIENT
  Age: 54 Year
  Sex: Female

DRUGS (5)
  1. ABRAXANE [Suspect]
     Indication: BREAST CANCER FEMALE
     Dosage: 434 MG 30 MIN (260 MG/M2)
     Route: 041
     Dates: start: 20050311, end: 20050311
  2. AMBIEN [Concomitant]
  3. LORAZEPAM [Concomitant]
  4. CLONAZEPAM [Concomitant]
  5. OXYCODONE [Concomitant]

REACTIONS (3)
  - MENTAL STATUS CHANGES [None]
  - SPEECH DISORDER [None]
  - TONGUE DISORDER [None]
